FAERS Safety Report 4494937-5 (Version None)
Quarter: 2004Q4

REPORT INFORMATION
  Report Type: 
  Country: None (occurrence: None)
  Receive Date: 20041104
  Receipt Date: 20041104
  Transmission Date: 20050328
  Serious: Yes (Other)
  Sender: FDA-Public Use
  Company Number: None

PATIENT
  Sex: Male
  Weight: 117.9352 kg

DRUGS (1)
  1. LISINOPRIL [Suspect]
     Indication: HYPERTENSION
     Dosage: ONE TABLE DAILY PO PROTEINURIA
     Route: 048
     Dates: start: 20030923, end: 20040315

REACTIONS (4)
  - BLOOD POTASSIUM INCREASED [None]
  - CHEST PAIN [None]
  - DYSPNOEA [None]
  - SWELLING [None]
